FAERS Safety Report 9269755 (Version 1)
Quarter: 2013Q2

REPORT INFORMATION
  Report Type: Report from Study
  Country: GB (occurrence: GB)
  Receive Date: 20130503
  Receipt Date: 20130503
  Transmission Date: 20140414
  Serious: Yes (Hospitalization)
  Sender: FDA-Public Use
  Company Number: GB-SANOFI-AVENTIS-2013SA036806

PATIENT
  Age: 72 Year
  Sex: Male
  Weight: 65.6 kg

DRUGS (16)
  1. DOCETAXEL [Suspect]
     Indication: PROSTATE CANCER
     Route: 042
     Dates: start: 20120517, end: 20120830
  2. ZOLEDRONIC ACID [Suspect]
     Indication: PROSTATE CANCER
     Route: 042
     Dates: start: 20120517, end: 20121129
  3. DECAPEPTYL [Suspect]
     Indication: PROSTATE CANCER
     Route: 065
     Dates: start: 20120302, end: 20130307
  4. RANITIDINE [Concomitant]
     Route: 048
  5. SIMVASTATIN [Concomitant]
     Route: 048
  6. TRAMADOL [Concomitant]
     Route: 048
  7. ASPIRIN [Concomitant]
     Route: 065
  8. BENDROFLUMETHIAZIDE [Concomitant]
     Route: 065
  9. CO-CODAMOL [Concomitant]
     Route: 065
  10. GLICLAZIDE [Concomitant]
     Route: 065
  11. LACIDIPINE [Concomitant]
     Route: 065
  12. METFORMIN [Concomitant]
     Route: 065
  13. RAMIPRIL [Concomitant]
     Route: 065
  14. DEXAMETHASONE [Concomitant]
     Route: 065
  15. MORPHINE SULFATE [Concomitant]
     Route: 065
  16. ORAMORPH [Concomitant]
     Route: 065

REACTIONS (5)
  - Dehydration [Not Recovered/Not Resolved]
  - Urinary tract infection [Recovered/Resolved]
  - Hyperglycaemia [Not Recovered/Not Resolved]
  - Dehydration [Not Recovered/Not Resolved]
  - Hyperglycaemia [Not Recovered/Not Resolved]
